FAERS Safety Report 13914074 (Version 1)
Quarter: 2017Q3

REPORT INFORMATION
  Report Type: Spontaneous
  Country: US (occurrence: US)
  Receive Date: 20170828
  Receipt Date: 20170828
  Transmission Date: 20171127
  Serious: No
  Sender: FDA-Public Use
  Company Number: US-ROCHE-1141147

PATIENT
  Sex: Male
  Weight: 65.3 kg

DRUGS (5)
  1. NEORAL [Concomitant]
     Active Substance: CYCLOSPORINE
  2. ATENOLOL. [Concomitant]
     Active Substance: ATENOLOL
  3. NIFEREX (POLYSACCHARIDE-IRON COMPLEX) [Concomitant]
     Active Substance: IRON\POLYSACCHARIDES
     Route: 065
  4. NUTROPIN [Suspect]
     Active Substance: SOMATROPIN
     Indication: CHRONIC KIDNEY DISEASE
     Route: 058
  5. SODIUM BICARBONATE. [Concomitant]
     Active Substance: SODIUM BICARBONATE

REACTIONS (1)
  - Gingival hypertrophy [Unknown]
